FAERS Safety Report 10616286 (Version 1)
Quarter: 2014Q4

REPORT INFORMATION
  Report Type: Spontaneous
  Country: US (occurrence: None)
  Receive Date: 20141126
  Receipt Date: 20141126
  Transmission Date: 20150529
  Serious: Yes (Hospitalization)
  Sender: FDA-Public Use
  Company Number: None

PATIENT
  Age: 77 Year
  Sex: Male

DRUGS (11)
  1. TYLENOL PM [Concomitant]
     Active Substance: ACETAMINOPHEN\DIPHENHYDRAMINE
  2. DICLOFENAC (EXTENDED RELEASE) [Suspect]
     Active Substance: DICLOFENAC
     Indication: BACK PAIN
     Dosage: 1 TABLET QD ORAL
     Route: 048
  3. ASPIRIN 81 MG [Suspect]
     Active Substance: ASPIRIN
     Indication: CARDIAC DISORDER
     Dosage: 1 PILL QD ORAL
     Route: 048
  4. METFORMIN [Concomitant]
     Active Substance: METFORMIN HYDROCHLORIDE
  5. RIVASTIGMINE [Concomitant]
     Active Substance: RIVASTIGMINE
  6. LISINOPRIL. [Concomitant]
     Active Substance: LISINOPRIL
  7. MEMANTINE [Concomitant]
     Active Substance: MEMANTINE
  8. SIMVASTATIN. [Concomitant]
     Active Substance: SIMVASTATIN
  9. TRAMADOL [Concomitant]
     Active Substance: TRAMADOL
  10. GABAPENTIN. [Concomitant]
     Active Substance: GABAPENTIN
  11. MULTIVITAMIN [Concomitant]
     Active Substance: VITAMINS

REACTIONS (3)
  - Ulcer [None]
  - Gastrointestinal haemorrhage [None]
  - Anaemia [None]

NARRATIVE: CASE EVENT DATE: 20140903
